FAERS Safety Report 5290692-X (Version None)
Quarter: 2007Q2

REPORT INFORMATION
  Report Type: 
  Country: None (occurrence: None)
  Receive Date: 20070405
  Receipt Date: 20070405
  Transmission Date: 20071010
  Serious: Yes (Hospitalization)
  Sender: FDA-Public Use
  Company Number: None

PATIENT
  Age: 39 Year
  Sex: Male
  Weight: 84.4 kg

DRUGS (15)
  1. MYFORTIC [Suspect]
     Indication: IMMUNOSUPPRESSION
     Dosage: 180MG  PO  TID
     Route: 048
     Dates: start: 20060807, end: 20060814
  2. MYFORTIC [Suspect]
     Indication: RENAL AND PANCREAS TRANSPLANT
     Dosage: 180MG  PO  TID
     Route: 048
     Dates: start: 20060807, end: 20060814
  3. VALGANCICLOVIR HCL [Concomitant]
  4. TACROLIMUS [Concomitant]
  5. METOCLOPRAMIDE [Concomitant]
  6. LANSOPRAZOLE [Concomitant]
  7. PREDNISONE TAB [Concomitant]
  8. NYSTATIN [Concomitant]
  9. INSULIN [Concomitant]
  10. LOVASTATIN [Concomitant]
  11. METOPROLOL SUCCINATE [Concomitant]
  12. LINEZOLID [Concomitant]
  13. WARFARIN SODIUM [Concomitant]
  14. DOCUSATE [Concomitant]
  15. BACTRIM [Concomitant]

REACTIONS (5)
  - ABDOMINAL PAIN [None]
  - DIARRHOEA [None]
  - GRAFT COMPLICATION [None]
  - NAUSEA [None]
  - VOMITING [None]
